FAERS Safety Report 10754578 (Version 1)
Quarter: 2015Q1

REPORT INFORMATION
  Report Type: Report from Study
  Country: CO (occurrence: CO)
  Receive Date: 20150202
  Receipt Date: 20150202
  Transmission Date: 20150721
  Serious: Yes (Other)
  Sender: FDA-Public Use
  Company Number: CO-ABBVIE-14P-036-1297955-00

PATIENT
  Age: 17 Day
  Sex: Male
  Weight: 4.34 kg

DRUGS (1)
  1. SYNAGIS [Suspect]
     Active Substance: PALIVIZUMAB
     Indication: PREMATURE BABY
     Route: 030
     Dates: start: 20140813, end: 20141017

REACTIONS (3)
  - Inguinal hernia [Recovered/Resolved]
  - Testicular disorder [Not Recovered/Not Resolved]
  - Testicular neoplasm [Not Recovered/Not Resolved]

NARRATIVE: CASE EVENT DATE: 20140823
